FAERS Safety Report 8039894-X (Version None)
Quarter: 2012Q1

REPORT INFORMATION
  Report Type: 
  Country: None (occurrence: None)
  Receive Date: 20120111
  Receipt Date: 20111221
  Transmission Date: 20120608
  Serious: No
  Sender: FDA-Public Use
  Company Number: US-AMGEN-USASP2011068354

PATIENT
  Age: 67 Year
  Sex: Male

DRUGS (5)
  1. ENBREL [Suspect]
     Indication: PSORIASIS
  2. ENBREL [Suspect]
     Indication: MYALGIA
  3. ENBREL [Suspect]
     Indication: FIBROMYALGIA
  4. METHOTREXATE [Concomitant]
     Dosage: UNK
  5. ENBREL [Suspect]
     Indication: PSORIATIC ARTHROPATHY
     Dosage: 50 MG, QWK
     Dates: start: 20070101

REACTIONS (3)
  - NECK PAIN [None]
  - MEMORY IMPAIRMENT [None]
  - CARPAL TUNNEL SYNDROME [None]
